FAERS Safety Report 17103407 (Version 2)
Quarter: 2020Q1

REPORT INFORMATION
  Report Type: Report from Study
  Country: US (occurrence: US)
  Receive Date: 20191203
  Receipt Date: 20200113
  Transmission Date: 20200409
  Serious: No
  Sender: FDA-Public Use
  Company Number: NVSC2019US028872

PATIENT
  Age: 34 Year
  Sex: Female

DRUGS (1)
  1. COSENTYX [Suspect]
     Active Substance: SECUKINUMAB
     Indication: PSORIASIS
     Dosage: 300 MG, Q4W
     Route: 058

REACTIONS (9)
  - Alopecia [Unknown]
  - Musculoskeletal deformity [Unknown]
  - Contusion [Unknown]
  - Cyst [Unknown]
  - Furuncle [Unknown]
  - Pruritus [Unknown]
  - Psoriasis [Unknown]
  - Rash papular [Unknown]
  - Myalgia [Unknown]
